FAERS Safety Report 10214974 (Version 1)
Quarter: 2014Q1

REPORT INFORMATION
  Report Type: Spontaneous
  Country: US (occurrence: None)
  Receive Date: 20140306
  Receipt Date: 20140306
  Transmission Date: 20141002
  Serious: Yes (Other)
  Sender: FDA-Public Use
  Company Number: 163-21880-12113138

PATIENT
  Age: 75 Year
  Sex: Male
  Weight: 72.6 kg

DRUGS (11)
  1. REVLIMID (LENALIDOMIDE) (10 MILLIGRAM, CAPSULES) [Suspect]
     Indication: PLASMA CELL MYELOMA
     Dosage: 10 MG, 21 IN 28 D, PO  12/ 2009 - 09/ 2011 THERAPY DATES
     Route: 048
     Dates: start: 200912, end: 201109
  2. BACTRIM (BACTRIM) (SULFAMETHOXAZOLE, TRIMETHOPRIM) [Concomitant]
  3. CARBAMAZEPINE (CARBAMAZEPINE) [Concomitant]
  4. DEXAMETHASONE (DEXAMETHAZONE) [Concomitant]
  5. FAMCICLOVIR (FAMCICLOVIR) [Concomitant]
  6. MAGNESIUM ELEMENTAL (MAGNESSIUM) [Concomitant]
  7. NEXIUM (ESOMEPRAZOLE) [Concomitant]
  8. TAZTIA XT (DILTIAZEM HYDROCHLORIDE) [Concomitant]
  9. WARFARIN SODIUM (WARFARIN SODIUM) [Concomitant]
  10. MORPHINE SULFATE (MORPHINE SULFATE) INJECTION [Concomitant]
  11. HYDROMORPHONE (HYDROMORPHONE) [Concomitant]

REACTIONS (6)
  - Adverse drug reaction [None]
  - Weight decreased [None]
  - Asthenia [None]
  - Asthenia [None]
  - Gait disturbance [None]
  - Dyspnoea [None]
